FAERS Safety Report 4451740-X (Version None)
Quarter: 2004Q3

REPORT INFORMATION
  Report Type: 
  Country: None (occurrence: None)
  Receive Date: 20040915
  Receipt Date: 20040909
  Transmission Date: 20050211
  Serious: Yes (Hospitalization)
  Sender: FDA-Public Use
  Company Number: STA-AE-04-MTX-402

PATIENT
  Age: 77 Year
  Sex: Female

DRUGS (1)
  1. RHEUMATREX [Suspect]
     Indication: RHEUMATOID ARTHRITIS
     Dosage: 4 MG 1X PER 1 WK
     Dates: start: 20010101, end: 20040427

REACTIONS (8)
  - ABNORMAL FAECES [None]
  - BONE MARROW DEPRESSION [None]
  - LUNG DISORDER [None]
  - PH URINE ABNORMAL [None]
  - PRODUCTIVE COUGH [None]
  - PYREXIA [None]
  - STOMATITIS [None]
  - STOOLS WATERY [None]
